FAERS Safety Report 18294135 (Version 1)
Quarter: 2020Q3

REPORT INFORMATION
  Report Type: Report from Study
  Country: CA (occurrence: CA)
  Receive Date: 20200921
  Receipt Date: 20200921
  Transmission Date: 20201103
  Serious: Yes (Other)
  Sender: FDA-Public Use
  Company Number: CA-BIOGEN-2020BI00926102

PATIENT
  Age: 30 Year
  Sex: Female

DRUGS (1)
  1. TYSABRI [Suspect]
     Active Substance: NATALIZUMAB
     Indication: PRODUCT USED FOR UNKNOWN INDICATION
     Dosage: INFUSED FOR 1 HOUR
     Route: 042
     Dates: start: 20190712

REACTIONS (9)
  - Paralysis [Recovered/Resolved]
  - Pharyngeal mass [Recovered/Resolved]
  - Stress [Recovered/Resolved]
  - Back pain [Recovered/Resolved]
  - Chest pain [Recovered/Resolved]
  - Asthenia [Recovered/Resolved]
  - Fatigue [Recovered/Resolved]
  - Dizziness [Recovered/Resolved]
  - Nausea [Recovered/Resolved]

NARRATIVE: CASE EVENT DATE: 20200914
